FAERS Safety Report 4895262-0 (Version None)
Quarter: 2006Q1

REPORT INFORMATION
  Report Type: 
  Country: None (occurrence: None)
  Receive Date: 20060130
  Receipt Date: 20060109
  Transmission Date: 20060701
  Serious: Yes (Life-Threatening, Hospitalization)
  Sender: FDA-Public Use
  Company Number: NL-GLAXOSMITHKLINE-B0405994A

PATIENT
  Age: 2 Year
  Sex: Female

DRUGS (4)
  1. LAMOTRIGINE [Suspect]
     Indication: DRUG USE FOR UNKNOWN INDICATION
     Dosage: 25MG UNKNOWN
     Route: 065
     Dates: start: 20051001, end: 20051231
  2. DEPAKENE [Concomitant]
  3. FLIXOTIDE [Concomitant]
  4. VENTOLIN [Concomitant]

REACTIONS (21)
  - CONDITION AGGRAVATED [None]
  - CONJUNCTIVITIS [None]
  - CONVULSION [None]
  - DRUG HYPERSENSITIVITY [None]
  - GALLOP RHYTHM PRESENT [None]
  - KAWASAKI'S DISEASE [None]
  - LIP DISORDER [None]
  - LYMPHADENOPATHY [None]
  - MUCOSAL INFLAMMATION [None]
  - OEDEMA [None]
  - PHARYNGEAL ERYTHEMA [None]
  - PYREXIA [None]
  - RASH [None]
  - RASH ERYTHEMATOUS [None]
  - SCARLET FEVER [None]
  - SKIN DISCOLOURATION [None]
  - SKIN EXFOLIATION [None]
  - STEVENS-JOHNSON SYNDROME [None]
  - STRAWBERRY TONGUE [None]
  - TYMPANIC MEMBRANE HYPERAEMIA [None]
  - VOMITING [None]
